FAERS Safety Report 15684859 (Version 1)
Quarter: 2018Q4

REPORT INFORMATION
  Report Type: Spontaneous
  Country: US (occurrence: US)
  Receive Date: 20181204
  Receipt Date: 20181204
  Transmission Date: 20190205
  Serious: Yes (Death, Hospitalization, Other)
  Sender: FDA-Public Use
  Company Number: US-ANTARES PHARMA, INC.-2018-LIT-ME-0500

PATIENT
  Age: 15 Year
  Sex: Female

DRUGS (2)
  1. METHOTREXATE. [Suspect]
     Active Substance: METHOTREXATE
     Indication: ACUTE LEUKAEMIA
     Dosage: 15 MG, QWK
     Route: 037
  2. METHOTREXATE. [Suspect]
     Active Substance: METHOTREXATE
     Dosage: 12 MG, WEEKLY
     Route: 037

REACTIONS (6)
  - Facial paralysis [Recovered/Resolved]
  - Bone marrow disorder [Fatal]
  - Quadriparesis [Recovered/Resolved]
  - Neurotoxicity [Fatal]
  - Aphasia [Recovered/Resolved]
  - Confusional state [Recovered/Resolved]
